FAERS Safety Report 16441917 (Version 1)
Quarter: 2019Q2

REPORT INFORMATION
  Report Type: Report from Study
  Country: None (occurrence: US)
  Receive Date: 20190617
  Receipt Date: 20190617
  Transmission Date: 20190711
  Serious: No
  Sender: FDA-Public Use
  Company Number: US-US WORLDMEDS, LLC-USW201809-001406

PATIENT
  Age: 79 Year
  Sex: Female
  Weight: 68.03 kg

DRUGS (7)
  1. APOKYN [Suspect]
     Active Substance: APOMORPHINE HYDROCHLORIDE
     Route: 058
  2. SINEMET [Concomitant]
     Active Substance: CARBIDOPA\LEVODOPA
     Dosage: 25/250 THRICE A DAY
  3. LEVODOPA/CARBIDOPA [Concomitant]
     Active Substance: CARBIDOPA\LEVODOPA
  4. APOKYN [Suspect]
     Active Substance: APOMORPHINE HYDROCHLORIDE
     Indication: PARKINSON^S DISEASE
     Route: 058
     Dates: start: 20180820
  5. AMANTADINE. [Concomitant]
     Active Substance: AMANTADINE HYDROCHLORIDE
  6. NEUPRO [Concomitant]
     Active Substance: ROTIGOTINE
  7. ENTACAPONE. [Concomitant]
     Active Substance: ENTACAPONE

REACTIONS (2)
  - Vision blurred [Unknown]
  - Dyskinesia [Unknown]

NARRATIVE: CASE EVENT DATE: 20180913
